FAERS Safety Report 16487242 (Version 1)
Quarter: 2019Q2

REPORT INFORMATION
  Report Type: Spontaneous
  Country: RO (occurrence: RO)
  Receive Date: 20190627
  Receipt Date: 20190627
  Transmission Date: 20190711
  Serious: Yes (Hospitalization, Other)
  Sender: FDA-Public Use
  Company Number: PHHY2019RO145047

PATIENT
  Age: 44 Year
  Sex: Male

DRUGS (5)
  1. HEPARIN LMW [Suspect]
     Active Substance: UNSPECIFIED INGREDIENT
     Indication: ANTIPLATELET THERAPY
     Route: 065
  2. ACENOCOUMAROL [Suspect]
     Active Substance: ACENOCOUMAROL
     Indication: ANTIPLATELET THERAPY
     Route: 065
  3. ACETYLSALICYLIC ACID [Suspect]
     Active Substance: ASPIRIN
     Indication: ANTIPLATELET THERAPY
     Dosage: 100 MG, QD
     Route: 065
  4. CLOPIDOGREL [Suspect]
     Active Substance: CLOPIDOGREL BISULFATE
     Indication: ANTIPLATELET THERAPY
     Dosage: UNK
     Route: 065
  5. METALYSE [Suspect]
     Active Substance: TENECTEPLASE
     Indication: THROMBOSIS
     Route: 065

REACTIONS (3)
  - Cardiac ventricular thrombosis [Recovered/Resolved]
  - Ischaemic stroke [Unknown]
  - Drug ineffective [Unknown]
